FAERS Safety Report 21780365 (Version 1)
Quarter: 2022Q4

REPORT INFORMATION
  Report Type: Spontaneous
  Country: ES (occurrence: ES)
  Receive Date: 20221227
  Receipt Date: 20221227
  Transmission Date: 20230113
  Serious: Yes (Other)
  Sender: FDA-Public Use
  Company Number: ES-CELLTRION INC.-2022ES021588

PATIENT

DRUGS (4)
  1. TRASTUZUMAB [Suspect]
     Active Substance: TRASTUZUMAB
     Indication: Extramammary Paget^s disease
     Dosage: 600 MILLIGRAM EVERY 21 DAYS
     Route: 058
  2. TRASTUZUMAB [Suspect]
     Active Substance: TRASTUZUMAB
     Indication: Adenocarcinoma
  3. PERTUZUMAB [Suspect]
     Active Substance: PERTUZUMAB
     Indication: Extramammary Paget^s disease
     Dosage: A LOADING DOSE OF 840 MG, FOLLOWED BY 420 MG EVERY 3 WEEKS
     Route: 042
  4. PERTUZUMAB [Suspect]
     Active Substance: PERTUZUMAB
     Indication: Adenocarcinoma

REACTIONS (3)
  - Extramammary Paget^s disease [Recovering/Resolving]
  - Adenocarcinoma [Recovering/Resolving]
  - Drug effective for unapproved indication [Unknown]
